FAERS Safety Report 19620448 (Version 5)
Quarter: 2022Q2

REPORT INFORMATION
  Report Type: Other
  Country: BE (occurrence: None)
  Receive Date: 20210728
  Receipt Date: 20220615
  Transmission Date: 20220721
  Serious: Yes (Other)
  Sender: FDA-Public Use
  Company Number: BE-ROCHE-2874670

PATIENT
  Age: 40 Year
  Sex: Female
  Weight: 73 kg

DRUGS (17)
  1. OCRELIZUMAB [Suspect]
     Active Substance: OCRELIZUMAB
     Indication: Primary progressive multiple sclerosis
     Route: 042
     Dates: start: 20201105
  2. SOLU-MEDROL [Concomitant]
     Active Substance: METHYLPREDNISOLONE SODIUM SUCCINATE
     Dates: start: 20210708, end: 20210708
  3. CETIRIZINE HYDROCHLORIDE [Concomitant]
     Active Substance: CETIRIZINE HYDROCHLORIDE
     Route: 048
     Dates: start: 20210708, end: 20210708
  4. PARACETAMOL FRESENIUS [Concomitant]
     Dates: start: 20210708, end: 20210708
  5. PANTOPRAZOLE [Concomitant]
     Active Substance: PANTOPRAZOLE
     Route: 048
     Dates: start: 20210708, end: 20210708
  6. AMANTADINE [Concomitant]
     Active Substance: AMANTADINE
     Route: 048
     Dates: start: 2017
  7. AMLODIPINE BESYLATE [Concomitant]
     Active Substance: AMLODIPINE BESYLATE
     Route: 048
     Dates: start: 201807, end: 20220110
  8. CHOLECALCIFEROL [Concomitant]
     Active Substance: CHOLECALCIFEROL
     Dosage: DRUG DOSE FIRST ADMINISTERED IS 1 AMPULE ;ONGOING: YES
     Route: 048
     Dates: start: 2013
  9. DULOXETINE EG [Concomitant]
     Route: 048
  10. PANTOPRAZOLE SODIUM [Concomitant]
     Active Substance: PANTOPRAZOLE SODIUM
     Route: 048
  11. RIVOTRIL [Concomitant]
     Active Substance: CLONAZEPAM
     Route: 048
     Dates: start: 201506
  12. OXYBUTYNIN [Concomitant]
     Active Substance: OXYBUTYNIN
     Route: 048
     Dates: start: 201506
  13. TRAMADOL EG [Concomitant]
     Route: 048
     Dates: start: 201506
  14. DAFALGAN [Concomitant]
     Active Substance: ACETAMINOPHEN
     Route: 048
  15. ACYCLOVIR [Concomitant]
     Active Substance: ACYCLOVIR
     Route: 048
     Dates: start: 20210420, end: 20210427
  16. COVID-19 VACCINE [Concomitant]
     Dosage: DRUG DOSE FIRST ADMINISTERED IS 0.5 ML (MILLILITER CM3) ;ONGOING: NO
     Route: 030
     Dates: start: 20210525, end: 20210525
  17. IBUPROFEN [Concomitant]
     Active Substance: IBUPROFEN
     Route: 048

REACTIONS (1)
  - Ophthalmic herpes zoster [Not Recovered/Not Resolved]

NARRATIVE: CASE EVENT DATE: 20210416
